FAERS Safety Report 14694244 (Version 3)
Quarter: 2018Q2

REPORT INFORMATION
  Report Type: Report from Study
  Country: US (occurrence: US)
  Receive Date: 20180329
  Receipt Date: 20180414
  Transmission Date: 20180711
  Serious: Yes (Hospitalization)
  Sender: FDA-Public Use
  Company Number: US-ROCHE-2096109

PATIENT
  Age: 53 Year
  Sex: Male
  Weight: 98.8 kg

DRUGS (7)
  1. ATEZOLIZUMAB. [Suspect]
     Active Substance: ATEZOLIZUMAB
     Indication: PANCREATIC CARCINOMA METASTATIC
     Dosage: DATE OF MOST RECENT DOSE OF ATEZOLIZUMAB (840) PRIOR TO AE ONSET : 05/MAR/2018?DAYS 1 AND 15 OF EACH
     Route: 042
     Dates: start: 20180305
  2. ZOFRAN [Concomitant]
     Active Substance: ONDANSETRON HYDROCHLORIDE
     Indication: NAUSEA
     Route: 065
     Dates: start: 20180305
  3. COBIMETINIB. [Suspect]
     Active Substance: COBIMETINIB
     Indication: PANCREATIC CARCINOMA METASTATIC
     Dosage: DAYS 1-21 OF EACH 28-DAY CYCLE?DATE OF MOST RECENT DOSE OF COBIMETINIB (60) PRIOR TO AE ONSET : 05/M
     Route: 048
     Dates: start: 20180305
  4. CALCIUM CARBONATE. [Concomitant]
     Active Substance: CALCIUM CARBONATE
     Indication: DYSPEPSIA
  5. COMPAZINE [Concomitant]
     Active Substance: PROCHLORPERAZINE MALEATE
     Indication: NAUSEA
     Route: 065
     Dates: start: 20180305
  6. PEPCID (UNITED STATES) [Concomitant]
     Indication: DYSPEPSIA
  7. LOVENOX [Concomitant]
     Active Substance: ENOXAPARIN SODIUM
     Indication: DEEP VEIN THROMBOSIS
     Route: 065
     Dates: start: 20171027

REACTIONS (1)
  - Febrile neutropenia [Recovered/Resolved]

NARRATIVE: CASE EVENT DATE: 20180321
